FAERS Safety Report 10029387 (Version 1)
Quarter: 2014Q1

REPORT INFORMATION
  Report Type: Report from Study
  Country: FI (occurrence: FI)
  Receive Date: 20140322
  Receipt Date: 20140322
  Transmission Date: 20141002
  Serious: Yes (Other)
  Sender: FDA-Public Use
  Company Number: PHHY2014FI031055

PATIENT
  Age: 15 Year
  Sex: Female

DRUGS (1)
  1. LEPONEX [Suspect]
     Indication: ACUTE PSYCHOSIS

REACTIONS (6)
  - Epilepsy [Unknown]
  - Psychotic disorder [Unknown]
  - Off label use [Unknown]
  - Incoherent [Unknown]
  - Gait disturbance [Unknown]
  - Drug administered to patient of inappropriate age [Unknown]
